FAERS Safety Report 8153426-7 (Version None)
Quarter: 2012Q1

REPORT INFORMATION
  Report Type: 
  Country: None (occurrence: None)
  Receive Date: 20120221
  Receipt Date: 20120210
  Transmission Date: 20120608
  Serious: Yes (Hospitalization)
  Sender: FDA-Public Use
  Company Number: FR-ROCHE-1014057

PATIENT
  Sex: Male
  Weight: 69 kg

DRUGS (11)
  1. VISMODEGIB [Suspect]
     Dates: start: 20111111
  2. ESCITALOPRAM OXALATE [Concomitant]
  3. LORAZEPAM [Concomitant]
  4. FLECAINIDE ACETATE [Concomitant]
     Dates: end: 20111110
  5. ACETAMINOPHEN [Concomitant]
     Dates: start: 20110728
  6. CALCIUM CARBONATE [Concomitant]
  7. PLAVIX [Concomitant]
     Dates: start: 20111109
  8. PERMIXON [Concomitant]
  9. DOMPERIDONE [Concomitant]
  10. LANSOPRAZOLE [Concomitant]
  11. VISMODEGIB [Suspect]
     Indication: BASAL CELL CARCINOMA
     Dosage: FREQUENCY DAILY, TEMPORARILY INTERRUPTED, LAST DOSE PRIOR SAE 08 NOV 2011
     Route: 048
     Dates: start: 20110705, end: 20111109

REACTIONS (2)
  - ATRIAL FIBRILLATION [None]
  - MYOCARDIAL ISCHAEMIA [None]
